FAERS Safety Report 10397468 (Version 1)
Quarter: 2014Q3

REPORT INFORMATION
  Report Type: Spontaneous
  Country: MX (occurrence: MX)
  Receive Date: 20140820
  Receipt Date: 20140820
  Transmission Date: 20150326
  Serious: Yes (Other)
  Sender: FDA-Public Use
  Company Number: MX-BAXTER-2014BAX048458

PATIENT
  Age: 44 Year
  Sex: Male

DRUGS (2)
  1. HEMOFIL M [Suspect]
     Active Substance: ANTIHEMOPHILIC FACTOR HUMAN
     Dosage: 10 BOTTLES DAILY
     Route: 042
     Dates: start: 20140811, end: 20140812
  2. HEMOFIL M [Suspect]
     Active Substance: ANTIHEMOPHILIC FACTOR HUMAN
     Indication: FACTOR VIII DEFICIENCY
     Route: 042

REACTIONS (6)
  - Joint injury [Recovering/Resolving]
  - Joint swelling [Recovering/Resolving]
  - Hypokinesia [Recovering/Resolving]
  - Fall [Recovered/Resolved]
  - Arthralgia [Recovered/Resolved]
  - Abasia [Recovering/Resolving]

NARRATIVE: CASE EVENT DATE: 20140810
